FAERS Safety Report 8299042-8 (Version None)
Quarter: 2012Q2

REPORT INFORMATION
  Report Type: 
  Country: None (occurrence: None)
  Receive Date: 20120419
  Receipt Date: 20120417
  Transmission Date: 20120825
  Serious: Yes (Other)
  Sender: FDA-Public Use
  Company Number: US-PFIZER INC-2012095483

PATIENT
  Sex: Female

DRUGS (5)
  1. CELEBREX [Suspect]
     Dosage: UNK
     Route: 048
  2. LIPITOR [Suspect]
     Indication: BLOOD CHOLESTEROL INCREASED
     Dosage: 20 MG, 1X/DAY
     Route: 048
  3. ASPIRIN [Concomitant]
     Dosage: UNK
  4. LIPITOR [Suspect]
     Dosage: UNK
     Route: 048
  5. CELEBREX [Suspect]
     Indication: ARTHRITIS
     Dosage: 200 MG, 1X/DAY
     Route: 048

REACTIONS (1)
  - GLAUCOMA [None]
